FAERS Safety Report 6823363-6 (Version None)
Quarter: 2010Q3

REPORT INFORMATION
  Report Type: 
  Country: None (occurrence: None)
  Receive Date: 20100708
  Receipt Date: 20100629
  Transmission Date: 20110219
  Serious: Yes (Hospitalization)
  Sender: FDA-Public Use
  Company Number: US-ABBOTT-09P-163-0565650-00

PATIENT
  Sex: Female
  Weight: 91 kg

DRUGS (18)
  1. HUMIRA [Suspect]
     Indication: CROHN'S DISEASE
     Route: 058
     Dates: start: 20080903, end: 20090227
  2. HUMIRA [Suspect]
     Route: 058
     Dates: start: 20090325
  3. BACTROBAN [Concomitant]
     Indication: RASH
     Dates: start: 20071212
  4. XANAX [Concomitant]
     Indication: DEPRESSION
     Dates: start: 20080116
  5. LIDEX [Concomitant]
     Indication: RASH
     Dosage: .05% OINTMENT
     Dates: start: 20080116
  6. ESTRACE [Concomitant]
     Indication: MENOPAUSE
     Dates: start: 20080116
  7. REMERON [Concomitant]
     Indication: DEPRESSION
     Dates: start: 20070328
  8. LEVOXYL [Concomitant]
     Indication: HYPOTHYROIDISM
     Dates: start: 20080116
  9. PROMETHAZINE HCL [Concomitant]
     Indication: NAUSEA
     Dates: start: 20070328
  10. VITAMIN B-12 [Concomitant]
     Indication: VITAMIN SUPPLEMENTATION
     Route: 050
     Dates: start: 20080116
  11. PROMETHAZINE HCL [Concomitant]
     Indication: NAUSEA
     Dates: start: 20070927
  12. CHOLESTYRAMINE [Concomitant]
     Indication: PROPHYLAXIS AGAINST DIARRHOEA
     Dosage: 0.5 SCOOP DAILY / 210 GM CAN
     Dates: start: 19970606
  13. ELAVIL [Concomitant]
     Indication: DEPRESSION
     Dates: start: 20090116
  14. NEXIUM [Concomitant]
     Indication: GASTROOESOPHAGEAL REFLUX DISEASE
     Dates: start: 20070606
  15. PROMETHAZINE [Concomitant]
     Indication: NAUSEA
     Route: 061
     Dates: start: 20090116
  16. ZOFRAN [Concomitant]
     Indication: NAUSEA
     Dates: start: 20070627
  17. ZOFRAN [Concomitant]
     Indication: VOMITING
  18. ACETAMINOPHEN W/ CODEINE [Concomitant]
     Indication: PAIN
     Dosage: 5/325 MG
     Dates: start: 20071212

REACTIONS (1)
  - SMALL INTESTINAL OBSTRUCTION [None]
